FAERS Safety Report 8281781 (Version 8)
Quarter: 2014Q1

REPORT INFORMATION
  Report Type: Report from Study
  Country: DE (occurrence: DE)
  Receive Date: 20111209
  Receipt Date: 20140218
  Transmission Date: 20141002
  Serious: Yes (Hospitalization)
  Sender: FDA-Public Use
  Company Number: DE-UCBSA-046992

PATIENT
  Age: 59 Year
  Sex: Female
  Weight: 65 kg

DRUGS (22)
  1. CERTOLIZUMAB PEGOL [Suspect]
     Indication: RHEUMATOID ARTHRITIS
     Dosage: NO. OF DOSES RECEIVED:18
     Route: 058
     Dates: start: 20110520, end: 20111109
  2. METHOTREXATE [Suspect]
     Indication: RHEUMATOID ARTHRITIS
     Route: 058
     Dates: start: 20100628
  3. METHOTREXATE [Suspect]
     Indication: RHEUMATOID ARTHRITIS
     Dosage: QS; 15 MG
     Dates: start: 20110425
  4. PREDNISOLONE [Concomitant]
     Indication: RHEUMATOID ARTHRITIS
     Route: 048
     Dates: start: 200402
  5. PREDNISOLONE [Concomitant]
     Indication: RHEUMATOID ARTHRITIS
     Dates: start: 20110102, end: 20110826
  6. PREDNISOLONE [Concomitant]
     Indication: RHEUMATOID ARTHRITIS
     Dates: start: 20110827, end: 20110831
  7. PREDNISOLONE [Concomitant]
     Indication: RHEUMATOID ARTHRITIS
     Dates: start: 20110901, end: 20110905
  8. PREDNISOLONE [Concomitant]
     Indication: RHEUMATOID ARTHRITIS
     Dates: start: 20110906, end: 20110920
  9. PREDNISOLONE [Concomitant]
     Indication: RHEUMATOID ARTHRITIS
     Dates: start: 20110921, end: 20120115
  10. PREDNISOLONE [Concomitant]
     Indication: RHEUMATOID ARTHRITIS
     Dates: start: 20120116, end: 20120301
  11. PREDNISOLONE [Concomitant]
     Indication: RHEUMATOID ARTHRITIS
     Dates: start: 20120302, end: 201205
  12. PREDNISOLONE [Concomitant]
     Indication: RHEUMATOID ARTHRITIS
     Dates: start: 201205, end: 201212
  13. PREDNISOLONE [Concomitant]
     Indication: RHEUMATOID ARTHRITIS
     Dates: start: 201212, end: 20130514
  14. PREDNISOLONE [Concomitant]
     Indication: RHEUMATOID ARTHRITIS
     Dates: start: 20130515
  15. FOLIC ACID [Concomitant]
     Indication: PROPHYLAXIS
     Route: 048
     Dates: start: 20041110
  16. FOLIC ACID [Concomitant]
     Indication: PROPHYLAXIS
     Dosage: 5 MG; BIS
     Dates: start: 20110426
  17. CALCILAC [Concomitant]
     Indication: OSTEOPOROSIS
     Dosage: DOSE:2X1. FREQ:DAILY; 500 MG/400IU
     Route: 048
     Dates: start: 20040401
  18. PROLIA [Concomitant]
     Indication: OSTEOPOROSIS
     Route: 058
     Dates: start: 20110316, end: 20110316
  19. PROLIA [Concomitant]
     Indication: OSTEOPOROSIS
     Dates: start: 201109, end: 201109
  20. PROLIA [Concomitant]
     Indication: OSTEOPOROSIS
     Dates: start: 20130525
  21. DEKRISTOL [Concomitant]
     Indication: OSTEOPOROSIS
     Route: 048
     Dates: start: 20101207
  22. DICLAC 50 [Concomitant]
     Dosage: 50 MG
     Dates: start: 20040401

REACTIONS (1)
  - Retinal detachment [Recovered/Resolved]
